FAERS Safety Report 19750567 (Version 1)
Quarter: 2021Q3

REPORT INFORMATION
  Report Type: Spontaneous
  Country: FR (occurrence: FR)
  Receive Date: 20210826
  Receipt Date: 20210826
  Transmission Date: 20211014
  Serious: Yes (Hospitalization)
  Sender: FDA-Public Use
  Company Number: FR-MYLANLABS-2021M1055280

PATIENT
  Age: 68 Year
  Sex: Male
  Weight: 90 kg

DRUGS (4)
  1. MIRTAZAPINE. [Suspect]
     Active Substance: MIRTAZAPINE
     Indication: DEPRESSION
     Dosage: 15 MILLIGRAM, QD
     Route: 048
  2. ALEPSAL                            /01606601/ [Suspect]
     Active Substance: CAFFEINE\PHENOBARBITAL
     Indication: EPILEPSY
     Dosage: 150 MILLIGRAM, QD
     Route: 048
  3. DEPAKINE                           /00228501/ [Suspect]
     Active Substance: VALPROIC ACID
     Indication: EPILEPSY
     Dosage: 2000 MILLIGRAM, QD
     Route: 048
  4. CYAMEMAZINE [Suspect]
     Active Substance: CYAMEMAZINE
     Indication: PSYCHOTIC DISORDER
     Dosage: 50 MILLIGRAM, QD
     Route: 048
     Dates: end: 20201006

REACTIONS (5)
  - Accidental overdose [Recovered/Resolved]
  - Drug level increased [Recovered/Resolved]
  - Somnolence [Recovered/Resolved]
  - Confusional state [Recovered/Resolved]
  - Extrapyramidal disorder [Recovered/Resolved]

NARRATIVE: CASE EVENT DATE: 202010
